FAERS Safety Report 13078356 (Version 1)
Quarter: 2017Q1

REPORT INFORMATION
  Report Type: Report from Study
  Country: US (occurrence: US)
  Receive Date: 20170102
  Receipt Date: 20170102
  Transmission Date: 20170428
  Serious: Yes (Death, Life-Threatening, Hospitalization, Other)
  Sender: FDA-Public Use
  Company Number: US-ROCHE-890290058001

PATIENT
  Age: 64 Year
  Sex: Female
  Weight: 36.3 kg

DRUGS (7)
  1. 5-FLUOROURACIL [Suspect]
     Active Substance: FLUOROURACIL
     Route: 042
     Dates: start: 19890710, end: 19890711
  2. INTERFERON ALFA-2A [Suspect]
     Active Substance: INTERFERON ALFA-2A
     Indication: OESOPHAGEAL CARCINOMA
     Route: 058
     Dates: start: 19890707, end: 19890707
  3. 5-FLUOROURACIL [Suspect]
     Active Substance: FLUOROURACIL
     Indication: OESOPHAGEAL CARCINOMA
     Route: 042
     Dates: start: 19890707, end: 19890710
  4. TYLENOL [Concomitant]
     Active Substance: ACETAMINOPHEN
     Route: 048
  5. DIGOXIN. [Concomitant]
     Active Substance: DIGOXIN
     Route: 048
  6. INTERFERON ALFA-2A [Suspect]
     Active Substance: INTERFERON ALFA-2A
     Route: 058
     Dates: start: 19890710, end: 19890712
  7. INDOCIN [Concomitant]
     Active Substance: INDOMETHACIN
     Route: 065

REACTIONS (8)
  - Metabolic acidosis [Not Recovered/Not Resolved]
  - Dehydration [Fatal]
  - Diabetes mellitus inadequate control [Not Recovered/Not Resolved]
  - Pulmonary oedema [Not Recovered/Not Resolved]
  - Pyrexia [Unknown]
  - Pericarditis [Not Recovered/Not Resolved]
  - Arrhythmia [Fatal]
  - Atrial fibrillation [Not Recovered/Not Resolved]

NARRATIVE: CASE EVENT DATE: 19890712
